FAERS Safety Report 6035462-X (Version None)
Quarter: 2009Q1

REPORT INFORMATION
  Report Type: 
  Country: None (occurrence: None)
  Receive Date: 20090112
  Receipt Date: 20090112
  Transmission Date: 20090719
  Serious: Yes (Other)
  Sender: FDA-Public Use
  Company Number: None

PATIENT
  Age: 62 Year
  Sex: Male
  Weight: 87.0906 kg

DRUGS (2)
  1. BUPROPION HYDROCHLORIDE SR 100 MG TIVO USA [Suspect]
     Indication: DYSTHYMIC DISORDER
     Dosage: 100 MG B.I.D. PO
     Route: 048
     Dates: start: 20081103, end: 20081109
  2. BUPROPION HYDROCHLORIDE SR 100 MG TIVO USA [Suspect]
     Indication: DYSTHYMIC DISORDER
     Dosage: 100 MG B.I.D. PO
     Route: 048
     Dates: start: 20081112, end: 20081115

REACTIONS (2)
  - PRODUCT QUALITY ISSUE [None]
  - TINNITUS [None]
